FAERS Safety Report 4941694-1 (Version None)
Quarter: 2006Q1

REPORT INFORMATION
  Report Type: 
  Country: None (occurrence: None)
  Receive Date: 20060308
  Receipt Date: 20060223
  Transmission Date: 20060701
  Serious: Yes (Other)
  Sender: FDA-Public Use
  Company Number: 2006029272

PATIENT
  Age: 90 Year
  Sex: Female
  Weight: 86.1834 kg

DRUGS (4)
  1. NORVASC [Suspect]
     Indication: HYPERTENSION
     Dosage: 10 MG (10 MG, QD INTERVAL: EVERY DAY), ORAL
     Route: 048
  2. ZANTAC [Concomitant]
  3. RANITIDINE [Concomitant]
  4. EFFEXOR [Concomitant]

REACTIONS (3)
  - ASTHENIA [None]
  - DIABETES MELLITUS [None]
  - OBESITY [None]
